FAERS Safety Report 6361559-0 (Version None)
Quarter: 2009Q3

REPORT INFORMATION
  Report Type: 
  Country: None (occurrence: None)
  Receive Date: 20090918
  Receipt Date: 20090910
  Transmission Date: 20100115
  Serious: Yes (Other)
  Sender: FDA-Public Use
  Company Number: US-PFIZER INC-2009267726

PATIENT
  Sex: Female

DRUGS (5)
  1. LIPITOR [Suspect]
  2. LEVOTHYROXINE [Concomitant]
     Dosage: UNK
  3. LOPRESSOR [Concomitant]
     Dosage: UNK
  4. DIAZIDE [Concomitant]
     Dosage: UNK
  5. MAXZIDE [Concomitant]
     Dosage: UNK

REACTIONS (5)
  - BLOOD PRESSURE INCREASED [None]
  - C-REACTIVE PROTEIN INCREASED [None]
  - DIABETES MELLITUS [None]
  - MUSCLE SPASMS [None]
  - THYROID DISORDER [None]
